FAERS Safety Report 5795572-9 (Version None)
Quarter: 2008Q2

REPORT INFORMATION
  Report Type: 
  Country: None (occurrence: None)
  Receive Date: 20080630
  Receipt Date: 20080618
  Transmission Date: 20081010
  Serious: Yes (Other)
  Sender: FDA-Public Use
  Company Number: US-PFIZER INC-2008051311

PATIENT
  Sex: Female

DRUGS (3)
  1. DETROL LA [Suspect]
     Indication: HYPERTONIC BLADDER
     Route: 065
  2. ULTRACET [Concomitant]
  3. ALL OTHER THERAPEUTIC PRODUCTS [Concomitant]

REACTIONS (2)
  - FATIGUE [None]
  - MYALGIA [None]
